FAERS Safety Report 8011024-X (Version None)
Quarter: 2011Q4

REPORT INFORMATION
  Report Type: 
  Country: None (occurrence: None)
  Receive Date: 20111222
  Receipt Date: 20111214
  Transmission Date: 20120403
  Serious: Yes (Other)
  Sender: FDA-Public Use
  Company Number: TPG2011A03219

PATIENT
  Age: 42 Year
  Sex: Male

DRUGS (10)
  1. ATORVASTATIN [Concomitant]
  2. PIOGLITAZONE HYDROCHLORIDE/METFORMIN HYDROCHLORIDE [Suspect]
     Indication: INSULIN RESISTANCE
     Dosage: PIOGLITAZONE/METFORMIN 15/850 MG PER ORAL
     Route: 048
     Dates: start: 20080201
  3. PIOGLITAZONE HYDROCHLORIDE/METFORMIN HYDROCHLORIDE [Suspect]
     Indication: TYPE 2 DIABETES MELLITUS
     Dosage: PIOGLITAZONE/METFORMIN 15/850 MG PER ORAL
     Route: 048
     Dates: start: 20080201
  4. BERLINSULIN H NORMAL (INSULIN) [Concomitant]
  5. VICTOZA [Concomitant]
  6. ALLOPURINOL [Concomitant]
  7. SEVIKAR (AMLODIPINE) [Concomitant]
  8. LANTUS [Concomitant]
  9. SEVIKAR (OLMESARTAN MEDOXOMIL) [Concomitant]
  10. JODETTEN (POTASSIUM IODIDE) [Concomitant]

REACTIONS (1)
  - RETINAL VEIN OCCLUSION [None]
